FAERS Safety Report 9101151 (Version 1)
Quarter: 2013Q1

REPORT INFORMATION
  Report Type: Spontaneous
  Country: LT (occurrence: LT)
  Receive Date: 20130218
  Receipt Date: 20130218
  Transmission Date: 20140127
  Serious: Yes (Life-Threatening, Hospitalization)
  Sender: FDA-Public Use
  Company Number: LT-TEVA-386393ISR

PATIENT
  Age: 38 Year
  Sex: Male

DRUGS (2)
  1. FINLEPSIN [Suspect]
     Indication: OVERDOSE
  2. TIAPRIDAL [Suspect]
     Indication: OVERDOSE

REACTIONS (7)
  - Suicide attempt [Recovered/Resolved]
  - Asthenia [Recovered/Resolved]
  - Somnolence [Recovered/Resolved]
  - Dizziness [Recovered/Resolved]
  - Tremor [Recovered/Resolved]
  - Arrhythmia [Recovered/Resolved]
  - Overdose [Unknown]
